FAERS Safety Report 5572338-6 (Version None)
Quarter: 2007Q4

REPORT INFORMATION
  Report Type: 
  Country: None (occurrence: None)
  Receive Date: 20071219
  Receipt Date: 20071210
  Transmission Date: 20080405
  Serious: Yes (Other)
  Sender: FDA-Public Use
  Company Number: 2007S1013366

PATIENT
  Age: 8 Year
  Sex: Male

DRUGS (3)
  1. CYSTAGON [Suspect]
     Indication: CYSTINOSIS
     Dosage: ; DAILY; ORAL, 10 MG/KG; 4 TIMES A DAY; ORAL
     Route: 048
     Dates: start: 20011001
  2. ALPHACALCIDOL [Concomitant]
  3. INDOCID /00003801/ [Concomitant]

REACTIONS (4)
  - ANGIOPATHY [None]
  - HAEMARTHROSIS [None]
  - SCAR [None]
  - SUBCUTANEOUS ABSCESS [None]
